FAERS Safety Report 7553911-2 (Version None)
Quarter: 2011Q2

REPORT INFORMATION
  Report Type: 
  Country: None (occurrence: None)
  Receive Date: 20110617
  Receipt Date: 20110616
  Transmission Date: 20111010
  Serious: Yes (Life-Threatening)
  Sender: FDA-Public Use
  Company Number: BR-B.I. PHARMACEUTICALS,INC./RIDGEFIELD-2011-BR-00609BR

PATIENT
  Sex: Female

DRUGS (2)
  1. BEROTEC [Suspect]
     Indication: ASTHMA
     Route: 055
  2. ATROVENT [Suspect]
     Indication: ASTHMA
     Route: 055

REACTIONS (1)
  - CARDIAC ARREST [None]
